FAERS Safety Report 14106842 (Version 1)
Quarter: 2017Q4

REPORT INFORMATION
  Report Type: Spontaneous
  Country: US (occurrence: US)
  Receive Date: 20171018
  Receipt Date: 20171018
  Transmission Date: 20180321
  Serious: Yes (Other)
  Sender: FDA-Public Use
  Company Number: None

PATIENT
  Age: 61 Year
  Sex: Female
  Weight: 61.65 kg

DRUGS (10)
  1. HYDROXCHLOROQUINE [Concomitant]
     Active Substance: HYDROXYCHLOROQUINE
  2. IMMUNE GLOBULIN [Concomitant]
     Active Substance: HUMAN IMMUNOGLOBULIN G
  3. VITAMIN D [Concomitant]
     Active Substance: CHOLECALCIFEROL
  4. CUVITRU [Suspect]
     Active Substance: HUMAN IMMUNOGLOBULIN G
     Indication: IMMUNE SYSTEM DISORDER
     Dosage: ?          QUANTITY:1 INJECTION(S);OTHER FREQUENCY:EVERY 2 WEEKS;?
     Route: 058
     Dates: start: 20170722, end: 20171015
  5. PROLIA [Concomitant]
     Active Substance: DENOSUMAB
  6. DEXILANT [Concomitant]
     Active Substance: DEXLANSOPRAZOLE
  7. PRO-BIOTIC [Concomitant]
  8. DIOVAN [Concomitant]
     Active Substance: VALSARTAN
  9. CYMBALTA [Concomitant]
     Active Substance: DULOXETINE HYDROCHLORIDE
  10. AMBIEN [Concomitant]
     Active Substance: ZOLPIDEM TARTRATE

REACTIONS (1)
  - Deafness unilateral [None]

NARRATIVE: CASE EVENT DATE: 20171005
